FAERS Safety Report 4667480-8 (Version None)
Quarter: 2005Q2

REPORT INFORMATION
  Report Type: 
  Country: None (occurrence: None)
  Receive Date: 20050520
  Receipt Date: 20041028
  Transmission Date: 20051028
  Serious: Yes (Other)
  Sender: FDA-Public Use
  Company Number: PHEH2004US11772

PATIENT
  Age: 60 Year
  Sex: Female

DRUGS (8)
  1. OMEPRAZOLE [Concomitant]
  2. TAMOXIFEN [Concomitant]
     Dosage: 20 MG, QD
     Dates: start: 20000501, end: 20030101
  3. ZOMETA [Suspect]
     Indication: METASTASES TO BONE
     Dosage: 4 MG MONTHLY
     Route: 042
     Dates: start: 20021002, end: 20040616
  4. METOPROLOL [Concomitant]
  5. FEMARA [Concomitant]
     Dosage: 2.5 MG, QD
     Dates: start: 20030201
  6. OXYCONTIN [Concomitant]
  7. EFFEXOR [Concomitant]
     Dosage: 37.5 MG, UNK
  8. LISINOPRIL [Concomitant]

REACTIONS (12)
  - ABSCESS NECK [None]
  - ABSCESS ORAL [None]
  - DENTAL DISCOMFORT [None]
  - DERMATITIS [None]
  - JAW DISORDER [None]
  - MUCOSAL EROSION [None]
  - OSTEOMYELITIS [None]
  - OSTEONECROSIS [None]
  - PAIN [None]
  - PURULENT DISCHARGE [None]
  - SWELLING [None]
  - TOOTH EXTRACTION [None]
